FAERS Safety Report 8681854 (Version 3)
Quarter: 2012Q4

REPORT INFORMATION
  Report Type: 
  Country: FR (occurrence: FR)
  Receive Date: 20120725
  Receipt Date: 20120918
  Transmission Date: 20130627
  Serious: Yes (Hospitalization)
  Sender: FDA-Public Use
  Company Number: FR-PFIZER INC-2012177607

PATIENT
  Age: 87 Year
  Sex: Female

DRUGS (6)
  1. CORDARONE [Suspect]
     Indication: ATRIAL FIBRILLATION
     Dosage: 200 mg, weekly
     Route: 048
     Dates: start: 2006, end: 20120621
  2. TRIATEC [Concomitant]
     Dosage: UNK
  3. LASILIX [Concomitant]
     Dosage: UNK
  4. KARDEGIC [Concomitant]
     Dosage: UNK
  5. VASTEN [Concomitant]
     Dosage: UNK
     Dates: start: 200706, end: 201108
  6. CARDENSIEL [Concomitant]
     Dosage: UNK
     Dates: start: 20120615

REACTIONS (4)
  - Interstitial lung disease [Not Recovered/Not Resolved]
  - Cardiac failure [Unknown]
  - Bronchitis pneumococcal [Unknown]
  - Pneumonia pneumococcal [Unknown]
